FAERS Safety Report 20803107 (Version 1)
Quarter: 2022Q2

REPORT INFORMATION
  Report Type: Spontaneous
  Country: US (occurrence: US)
  Receive Date: 20220509
  Receipt Date: 20220509
  Transmission Date: 20220720
  Serious: No
  Sender: FDA-Public Use
  Company Number: US-AMNEAL PHARMACEUTICALS-2022-AMRX-00119

PATIENT
  Age: 62 Year
  Sex: Male

DRUGS (1)
  1. BUPRENORPHINE TRANSDERMAL SYSTEM [Suspect]
     Active Substance: BUPRENORPHINE
     Indication: Pain
     Dosage: UNK, 5MCG/HR
     Route: 062
     Dates: start: 20211217, end: 20220128

REACTIONS (2)
  - Drug ineffective [Unknown]
  - Drug screen negative [Unknown]

NARRATIVE: CASE EVENT DATE: 20211201
